FAERS Safety Report 21260323 (Version 3)
Quarter: 2022Q4

REPORT INFORMATION
  Report Type: Spontaneous
  Country: GB (occurrence: GB)
  Receive Date: 20220826
  Receipt Date: 20221018
  Transmission Date: 20230113
  Serious: Yes (Other)
  Sender: FDA-Public Use
  Company Number: GB-TEVA-2022-GB-2066008

PATIENT
  Age: 51 Year

DRUGS (1)
  1. CABERGOLINE [Suspect]
     Active Substance: CABERGOLINE
     Dosage: 500 UG
     Route: 048

REACTIONS (3)
  - Blindness [Unknown]
  - Vision blurred [Unknown]
  - Accommodation disorder [Unknown]
